FAERS Safety Report 10081178 (Version 1)
Quarter: 2014Q2

REPORT INFORMATION
  Report Type: Spontaneous
  Country: US (occurrence: None)
  Receive Date: 20140415
  Receipt Date: 20140415
  Transmission Date: 20141212
  Serious: Yes (Disabling)
  Sender: FDA-Public Use
  Company Number: None

PATIENT
  Age: 43 Year
  Sex: Female
  Weight: 61.24 kg

DRUGS (1)
  1. AFRIN NO DRIP [Suspect]
     Indication: NASOPHARYNGITIS
     Dates: start: 20120607, end: 20120608

REACTIONS (2)
  - Anosmia [None]
  - Dysgeusia [None]
